FAERS Safety Report 9478218 (Version 2)
Quarter: 2013Q3

REPORT INFORMATION
  Report Type: Spontaneous
  Country: NO (occurrence: NO)
  Receive Date: 20130827
  Receipt Date: 20130906
  Transmission Date: 20140515
  Serious: Yes (Other)
  Sender: FDA-Public Use
  Company Number: NO-PFIZER INC-2013246470

PATIENT
  Sex: Male

DRUGS (3)
  1. ARTHROTEC [Suspect]
     Dosage: UNK
     Route: 048
  2. XARELTO [Suspect]
     Indication: CEREBROVASCULAR ACCIDENT PROPHYLAXIS
     Dosage: UNK
     Route: 048
     Dates: start: 201210
  3. XARELTO [Suspect]
     Indication: ATRIAL FIBRILLATION

REACTIONS (2)
  - Conjunctival haemorrhage [Recovered/Resolved]
  - Conjunctival haemorrhage [Unknown]
